FAERS Safety Report 13085654 (Version 2)
Quarter: 2017Q1

REPORT INFORMATION
  Report Type: Spontaneous
  Country: US (occurrence: US)
  Receive Date: 20170104
  Receipt Date: 20170126
  Transmission Date: 20170428
  Serious: No
  Sender: FDA-Public Use
  Company Number: US-PFIZER INC-2016603990

PATIENT
  Age: 45 Year
  Sex: Male
  Weight: 93 kg

DRUGS (7)
  1. PRINIVIL [Concomitant]
     Active Substance: LISINOPRIL
     Dosage: 10 MG, DAILY
     Route: 048
  2. CEFDINIR. [Concomitant]
     Active Substance: CEFDINIR
     Dosage: 300 MG, 2X/DAY (EVERY TWELVE HOURS)
     Route: 048
  3. EXCEDRIN [Concomitant]
     Active Substance: ACETAMINOPHEN\ASPIRIN\CAFFEINE
     Indication: MIGRAINE
     Dosage: UNK, AS NEEDED
     Route: 048
  4. ANDROGEL [Concomitant]
     Active Substance: TESTOSTERONE
     Dosage: 7.5 G, DAILY
     Route: 061
  5. GENOTROPIN MQ [Suspect]
     Active Substance: SOMATROPIN
     Dosage: 0.6 MG, DAILY
     Dates: start: 2009
  6. CENTRUM [Concomitant]
     Active Substance: VITAMINS
     Dosage: UNK
     Route: 048
  7. GENOTROPIN MQ [Suspect]
     Active Substance: SOMATROPIN
     Indication: GROWTH HORMONE DEFICIENCY
     Dosage: 0.4 MG, DAILY (7 DAYS/WK)
     Route: 058

REACTIONS (9)
  - Depressed mood [Unknown]
  - Asthenia [Unknown]
  - Weight increased [Unknown]
  - Insomnia [Unknown]
  - Sleep disorder [Unknown]
  - Disturbance in attention [Unknown]
  - Visual acuity reduced [Unknown]
  - Malaise [Unknown]
  - Fatigue [Unknown]
